FAERS Safety Report 7214893-6 (Version None)
Quarter: 2011Q1

REPORT INFORMATION
  Report Type: 
  Country: None (occurrence: None)
  Receive Date: 20110107
  Receipt Date: 20100426
  Transmission Date: 20110831
  Serious: No
  Sender: FDA-Public Use
  Company Number: A0856757A

PATIENT
  Age: 70 Year
  Sex: Female

DRUGS (14)
  1. ALLEGRA [Concomitant]
  2. LIBRAX [Concomitant]
  3. ASPIRIN [Concomitant]
  4. QVAR 40 [Concomitant]
  5. ALDACTONE [Concomitant]
  6. ZOCOR [Concomitant]
  7. LOVAZA [Suspect]
     Dosage: 1TAB PER DAY
     Route: 048
  8. PREDNISONE [Concomitant]
  9. CALCIUM [Concomitant]
  10. MULTI-VITAMINS [Concomitant]
  11. ASMACORT [Concomitant]
  12. ALBUTEROL [Concomitant]
  13. FLONASE [Concomitant]
  14. NORVASC [Concomitant]

REACTIONS (2)
  - ABNORMAL DREAMS [None]
  - CONSTIPATION [None]
